FAERS Safety Report 14472968 (Version 2)
Quarter: 2018Q1

REPORT INFORMATION
  Report Type: Spontaneous
  Country: US (occurrence: US)
  Receive Date: 20180201
  Receipt Date: 20180323
  Transmission Date: 20180509
  Serious: No
  Sender: FDA-Public Use
  Company Number: US-ASTRAZENECA-2018SE12646

PATIENT
  Age: 80 Year
  Sex: Female
  Weight: 52 kg

DRUGS (2)
  1. NEXIUM 24HR [Suspect]
     Active Substance: ESOMEPRAZOLE MAGNESIUM
     Indication: DYSPEPSIA
     Route: 048
     Dates: start: 20171110, end: 20171117
  2. NEXIUM 24HR [Suspect]
     Active Substance: ESOMEPRAZOLE MAGNESIUM
     Indication: DYSPEPSIA
     Dosage: 1 TO 2 TABLETS, DAILY
     Route: 048
     Dates: start: 201801, end: 20180124

REACTIONS (6)
  - Dysphagia [Recovered/Resolved]
  - Foreign body in respiratory tract [Unknown]
  - Product use complaint [Recovered/Resolved]
  - Choking sensation [Unknown]
  - Extra dose administered [Unknown]
  - Product size issue [Recovered/Resolved]

NARRATIVE: CASE EVENT DATE: 20171114
